FAERS Safety Report 8485757-5 (Version None)
Quarter: 2012Q3

REPORT INFORMATION
  Report Type: 
  Country: None (occurrence: None)
  Receive Date: 20120703
  Receipt Date: 20120628
  Transmission Date: 20120928
  Serious: Yes (Other)
  Sender: FDA-Public Use
  Company Number: DE-JNJFOC-20120700509

PATIENT
  Sex: Female
  Weight: 88 kg

DRUGS (3)
  1. XARELTO [Suspect]
     Indication: THROMBOSIS PROPHYLAXIS
     Route: 065
  2. XARELTO [Suspect]
     Indication: DEEP VEIN THROMBOSIS
     Route: 065
  3. FOSTER [Concomitant]
     Indication: ASTHMA
     Route: 055

REACTIONS (2)
  - MUSCULOSKELETAL PAIN [None]
  - GOUT [None]
